FAERS Safety Report 5766266-0 (Version None)
Quarter: 2008Q2

REPORT INFORMATION
  Report Type: 
  Country: None (occurrence: None)
  Receive Date: 20080611
  Receipt Date: 20080521
  Transmission Date: 20081010
  Serious: No
  Sender: FDA-Public Use
  Company Number: US-ABBOTT-08P-163-0454987-00

PATIENT
  Sex: Female
  Weight: 62.198 kg

DRUGS (4)
  1. HUMIRA [Suspect]
     Indication: RHEUMATOID ARTHRITIS
     Route: 058
     Dates: start: 20080517
  2. ASCORBIC ACID [Concomitant]
     Indication: VITAMIN SUPPLEMENTATION
     Route: 048
  3. ONE A DAY [Concomitant]
     Indication: VITAMIN SUPPLEMENTATION
     Route: 048
  4. FISH OIL [Concomitant]
     Indication: VITAMIN SUPPLEMENTATION
     Route: 048

REACTIONS (4)
  - COUGH [None]
  - FATIGUE [None]
  - INJECTION SITE PAIN [None]
  - VIRAL INFECTION [None]
